FAERS Safety Report 18089790 (Version 3)
Quarter: 2020Q3

REPORT INFORMATION
  Report Type: Spontaneous
  Country: US (occurrence: US)
  Receive Date: 20200729
  Receipt Date: 20200902
  Transmission Date: 20201103
  Serious: Yes (Death, Life-Threatening, Hospitalization, Other)
  Sender: FDA-Public Use
  Company Number: US-GILEAD-2020-0486578

PATIENT
  Age: 91 Year
  Sex: Female
  Weight: 70 kg

DRUGS (10)
  1. REMDESIVIR. [Suspect]
     Active Substance: REMDESIVIR
     Indication: COVID-19 PNEUMONIA
     Dosage: 200 MG, ONCE
     Route: 042
     Dates: start: 20200721, end: 20200721
  2. ROCEPHIN [Concomitant]
     Active Substance: CEFTRIAXONE SODIUM
     Indication: PNEUMONIA
     Dosage: 2 G
     Route: 042
     Dates: start: 20200718, end: 20200725
  3. DEXAMETHASONE. [Concomitant]
     Active Substance: DEXAMETHASONE
     Indication: RESPIRATORY FAILURE
     Dosage: 10 MG
     Route: 042
     Dates: start: 20200718, end: 20200725
  4. IVERMECTIN. [Concomitant]
     Active Substance: IVERMECTIN
     Indication: COVID-19
     Dosage: 15000 MG, ONCE
     Route: 048
     Dates: start: 20200718, end: 20200718
  5. LOVENOX [Concomitant]
     Active Substance: ENOXAPARIN SODIUM
     Indication: THROMBOSIS PROPHYLAXIS
     Dosage: 30 MG
     Route: 058
     Dates: start: 20200718
  6. GLIMEPIRIDE. [Concomitant]
     Active Substance: GLIMEPIRIDE
     Indication: DIABETES MELLITUS
     Dosage: 2 MG
     Route: 048
     Dates: start: 20200718, end: 20200724
  7. AZITHROMYCIN ANHYDROUS. [Concomitant]
     Active Substance: AZITHROMYCIN ANHYDROUS
     Indication: PNEUMONIA
     Dosage: 500 MG
     Route: 042
     Dates: start: 20200718, end: 20200725
  8. REMDESIVIR. [Suspect]
     Active Substance: REMDESIVIR
     Indication: COVID-19
     Dosage: 100 MG, QD
     Route: 042
     Dates: start: 20200722, end: 20200723
  9. IRBESARTAN. [Concomitant]
     Active Substance: IRBESARTAN
     Indication: HYPERTENSION
     Dosage: 75 MG
     Route: 048
     Dates: start: 20200718, end: 20200724
  10. METHYLPREDNISOLONE. [Concomitant]
     Active Substance: METHYLPREDNISOLONE
     Indication: RESPIRATORY FAILURE
     Dosage: 40 MG
     Route: 042
     Dates: start: 20200717, end: 20200718

REACTIONS (4)
  - Renal failure [Not Recovered/Not Resolved]
  - Cardiac arrest [Fatal]
  - Hyperkalaemia [Fatal]
  - COVID-19 pneumonia [Fatal]

NARRATIVE: CASE EVENT DATE: 20200723
